FAERS Safety Report 10267431 (Version 3)
Quarter: 2014Q3

REPORT INFORMATION
  Report Type: Report from Study
  Country: NZ (occurrence: NZ)
  Receive Date: 20140630
  Receipt Date: 20140917
  Transmission Date: 20150326
  Serious: Yes (Death, Other)
  Sender: FDA-Public Use
  Company Number: PHHY2014NZ080098

PATIENT
  Age: 39 Year
  Sex: Female

DRUGS (6)
  1. COLOXYL C SENNA [Concomitant]
     Indication: CONSTIPATION
     Dosage: 2 DF, BID (2 TABLET BD)
     Route: 048
     Dates: start: 20140120
  2. LACTULOSE. [Concomitant]
     Active Substance: LACTULOSE
     Indication: CONSTIPATION
     Dosage: 20 ML, BID (20 ML BD)
     Route: 048
     Dates: start: 20100809
  3. CLOZARIL [Suspect]
     Active Substance: CLOZAPINE
     Indication: SCHIZOPHRENIA
     Dosage: UKN
     Route: 048
     Dates: start: 20050902
  4. IMIPRAMINE [Suspect]
     Active Substance: IMIPRAMINE
     Indication: ANXIETY
  5. CLOZARIL [Suspect]
     Active Substance: CLOZAPINE
     Indication: PSYCHOTIC DISORDER
     Dosage: 300 MG, (AT NIGHT)
     Route: 048
     Dates: start: 2010
  6. IMIPRAMINE [Suspect]
     Active Substance: IMIPRAMINE
     Indication: DEPRESSION
     Dosage: 100 MG, (AT NIGHT) NOCTE
     Route: 048
     Dates: start: 20110628

REACTIONS (5)
  - Completed suicide [Fatal]
  - Overdose [Fatal]
  - White blood cell count increased [Unknown]
  - Constipation [Unknown]
  - Neutrophil count increased [Unknown]

NARRATIVE: CASE EVENT DATE: 20140528
